FAERS Safety Report 15954530 (Version 1)
Quarter: 2019Q1

REPORT INFORMATION
  Report Type: Spontaneous
  Country: CN (occurrence: CN)
  Receive Date: 20190213
  Receipt Date: 20190213
  Transmission Date: 20190417
  Serious: Yes (Hospitalization)
  Sender: FDA-Public Use
  Company Number: CN-APOTEX-2019AP007689

PATIENT

DRUGS (5)
  1. SEROXAT [Suspect]
     Active Substance: PAROXETINE HYDROCHLORIDE
     Dosage: UNK UNK, QD
     Route: 065
     Dates: start: 20180410
  2. SEROXAT [Suspect]
     Active Substance: PAROXETINE HYDROCHLORIDE
     Indication: DEPRESSION
     Dosage: UNK UNK, QD
     Route: 048
     Dates: start: 2004
  3. SEROXAT [Suspect]
     Active Substance: PAROXETINE HYDROCHLORIDE
     Indication: OBSESSIVE-COMPULSIVE DISORDER
     Dosage: UNK
     Route: 065
     Dates: start: 201708
  4. SEROXAT [Suspect]
     Active Substance: PAROXETINE HYDROCHLORIDE
     Dosage: UNK (ONE AND HALF TABLET DAILY)
     Route: 065
     Dates: start: 20180410
  5. SEROXAT [Suspect]
     Active Substance: PAROXETINE HYDROCHLORIDE
     Dosage: UNK, BID
     Route: 065
     Dates: start: 20180410

REACTIONS (10)
  - Irritability [Unknown]
  - Nausea [Unknown]
  - Depression [Unknown]
  - Weight fluctuation [Unknown]
  - Constipation [Unknown]
  - Obsessive-compulsive disorder [Unknown]
  - Confusional state [Unknown]
  - Disease recurrence [Unknown]
  - Hyperhidrosis [Unknown]
  - Drug ineffective [Unknown]
